FAERS Safety Report 22282538 (Version 1)
Quarter: 2023Q2

REPORT INFORMATION
  Report Type: Report from Study
  Country: GB (occurrence: GB)
  Receive Date: 20230504
  Receipt Date: 20230504
  Transmission Date: 20230722
  Serious: Yes (Other)
  Sender: FDA-Public Use
  Company Number: GB-ROCHE-3221126

PATIENT
  Age: 78 Year
  Sex: Female

DRUGS (27)
  1. DOCETAXEL [Suspect]
     Active Substance: DOCETAXEL
     Indication: Breast cancer metastatic
     Dosage: UNIT DOSE : 74 MG , FREQUENCY : 1 IN 3 WEEKS , DURATION : 64 DAYS
     Route: 042
     Dates: start: 20160318, end: 20160520
  2. DOCETAXEL [Suspect]
     Active Substance: DOCETAXEL
     Dosage: UNIT DOSE : 94 MG , FREQUENCY : 1 IN 3 WEEKS , DURATION : 57 DAYS
     Route: 042
     Dates: start: 20160122, end: 20160318
  3. PERTUZUMAB [Suspect]
     Active Substance: PERTUZUMAB
     Indication: Breast cancer metastatic
     Dosage: UNIT DOSE : 420 MG, DURATION : 358 DAYS
     Route: 042
     Dates: start: 20200619, end: 20210611
  4. PERTUZUMAB [Suspect]
     Active Substance: PERTUZUMAB
     Dosage: UNIT DOSE : 420 MG, DURATION : 4 YEARS
     Route: 042
     Dates: start: 20160212, end: 20200327
  5. PERTUZUMAB [Suspect]
     Active Substance: PERTUZUMAB
     Dosage: UNIT DOSE : 840 MG, DURATION : 1 DAY
     Route: 042
     Dates: start: 20160121, end: 20160121
  6. PERTUZUMAB [Suspect]
     Active Substance: PERTUZUMAB
     Dosage: UNIT DOSE : 840 MG, DURATION : 1 DAY
     Route: 042
     Dates: start: 20200529, end: 20200529
  7. TRASTUZUMAB [Suspect]
     Active Substance: TRASTUZUMAB
     Indication: Breast cancer metastatic
     Dosage: UNIT DOSE : 1200 MG, FREQUENCY : 1 IN 3 WEEKS, THERAPY END DATE : NASK
     Route: 058
     Dates: start: 20210702
  8. TRASTUZUMAB [Suspect]
     Active Substance: TRASTUZUMAB
     Dosage: UNIT DOSE : 630 MG, DURATION : 1 DAY
     Route: 041
     Dates: start: 20160121, end: 20160121
  9. TRASTUZUMAB [Suspect]
     Active Substance: TRASTUZUMAB
     Dosage: UNIT DOSE : 441 MG, DURATION : 358 DAYS
     Route: 042
     Dates: start: 20200619, end: 20210611
  10. TRASTUZUMAB [Suspect]
     Active Substance: TRASTUZUMAB
     Dosage: UNIT DOSE : 588 MG, DURATION : 1 DAYS
     Route: 042
     Dates: start: 20200529, end: 20200529
  11. TRASTUZUMAB [Suspect]
     Active Substance: TRASTUZUMAB
     Dosage: UNIT DOSE : 441 MG, DURATION : 526 DAYS
     Route: 042
     Dates: start: 20181019, end: 20200327
  12. TRASTUZUMAB [Suspect]
     Active Substance: TRASTUZUMAB
     Dosage: UNIT DOSE : 420 MG, DURATION : 757 DAYS
     Route: 042
     Dates: start: 20160923, end: 20181019
  13. TRASTUZUMAB [Suspect]
     Active Substance: TRASTUZUMAB
     Dosage: UNIT DOSE : 472.5 MG, DURATION : 204 DAYS
     Route: 042
     Dates: start: 20160212, end: 20160902
  14. AMLODIPINE [Concomitant]
     Active Substance: AMLODIPINE BESYLATE
     Indication: Hypertension
     Dosage: 5 MILLIGRAM DAILY; UNIT DOSE : 5 MG, OD
     Route: 048
     Dates: start: 20200219
  15. BUPRENORPHINE [Concomitant]
     Active Substance: BUPRENORPHINE
     Indication: Arthralgia
     Dosage: UNIT DOSE : 52.5 MCG, FREQUENCY : 1 IN 1 WEEK
     Route: 062
  16. BUTRANS [Concomitant]
     Active Substance: BUPRENORPHINE
     Indication: Arthralgia
     Dosage: 5 MICROGRAM DAILY; 5 MCG, OD
     Route: 062
  17. CODEINE [Concomitant]
     Active Substance: CODEINE
     Indication: Arthralgia
     Dosage: 30 MG, FREQUENCY : 1 IN 1 AS REQUIRED
     Route: 048
  18. DIORALYTE [Concomitant]
     Active Substance: CITRIC ACID MONOHYDRATE\DEXTROSE\POTASSIUM CATION\SODIUM CHLORIDE
     Indication: Diarrhoea
     Dosage: 1 OTHER SACHET OTHER POWDER. FREQUENCY : 1 IN 1 AS REQUIRED
     Route: 048
     Dates: start: 20160427
  19. DIORALYTE [Concomitant]
     Active Substance: CITRIC ACID MONOHYDRATE\DEXTROSE\POTASSIUM CATION\SODIUM CHLORIDE
     Indication: Adverse event
  20. HYDROXYZINE [Concomitant]
     Active Substance: HYDROXYZINE HYDROCHLORIDE
     Indication: Rash
     Dosage: 25 MILLIGRAM DAILY; 25 MG, OD
     Route: 048
     Dates: start: 20160305
  21. HYDROXYZINE [Concomitant]
     Active Substance: HYDROXYZINE HYDROCHLORIDE
     Indication: Adverse event
  22. IBUPROFEN [Concomitant]
     Active Substance: IBUPROFEN
     Indication: Arthralgia
     Dosage: UNIT DOSE : 1 GTT, FREQUENCY : 1 IN 1 AS REQUIRED
     Route: 061
  23. LANSOPRAZOLE [Concomitant]
     Active Substance: LANSOPRAZOLE
     Indication: Product used for unknown indication
     Dosage: 30 MG, FREQUENCY : 1 IN 1 AS REQUIRED
     Route: 048
     Dates: start: 20160210
  24. LOPERAMIDE [Concomitant]
     Active Substance: LOPERAMIDE
     Indication: Adverse event
     Dosage: UNIT DOSE : 4 MG, FREQUENCY : 1 IN 1 AS REQUIRED
     Route: 048
     Dates: start: 20160302
  25. LOPERAMIDE [Concomitant]
     Active Substance: LOPERAMIDE
     Indication: Diarrhoea
  26. MORPHINE [Concomitant]
     Active Substance: MORPHINE
     Indication: Pain
     Dosage: 5 ML, FREQUENCY : 1 IN 1 AS REQUIRED
     Route: 048
  27. ACETAMINOPHEN [Concomitant]
     Active Substance: ACETAMINOPHEN
     Indication: Arthralgia
     Dosage: 1 GRAM , FREQUENCY : 1 IN 1 AS REQUIRED
     Route: 048

REACTIONS (1)
  - Colon cancer [Not Recovered/Not Resolved]

NARRATIVE: CASE EVENT DATE: 20220616
